FAERS Safety Report 15298596 (Version 1)
Quarter: 2018Q4

REPORT INFORMATION
  Report Type: Spontaneous
  Country: JP (occurrence: JP)
  Receive Date: 20180820
  Receipt Date: 20180820
  Transmission Date: 20190204
  Serious: Yes (Hospitalization, Other)
  Sender: FDA-Public Use
  Company Number: JP-NAPPMUNDI-GBR-2016-0039199

PATIENT
  Age: 79 Year
  Sex: Female

DRUGS (12)
  1. OXINORM (OXYCODONE HYDROCHLORIDE) [Suspect]
     Active Substance: OXYCODONE HYDROCHLORIDE
     Dosage: 2.5 MG, DAILY
     Route: 048
     Dates: start: 20160620, end: 20160620
  2. SORENTMIN                          /00774301/ [Suspect]
     Active Substance: BROTIZOLAM
     Indication: CANCER PAIN
     Dosage: 0.25 MG, DAILY
     Route: 048
     Dates: start: 201606
  3. ZOLPIDEM TARTRATE. [Suspect]
     Active Substance: ZOLPIDEM TARTRATE
     Indication: CANCER PAIN
     Dosage: 10 MG, DAILY
     Route: 048
     Dates: start: 201606
  4. DICLOFENAC SODIUM. [Concomitant]
     Active Substance: DICLOFENAC SODIUM
     Indication: PAIN
  5. OXINORM (OXYCODONE HYDROCHLORIDE) [Suspect]
     Active Substance: OXYCODONE HYDROCHLORIDE
     Dosage: 2.5 MG, BID
     Route: 048
     Dates: start: 20160621, end: 20160621
  6. ACETAMINOPHEN. [Suspect]
     Active Substance: ACETAMINOPHEN
     Indication: BACK PAIN
     Dosage: 1600 MG, DAILY
     Route: 048
     Dates: start: 20160603, end: 20160623
  7. CALONAL [Concomitant]
     Active Substance: ACETAMINOPHEN
     Indication: BACK PAIN
     Dosage: 1800 MG, DAILY
     Route: 048
  8. OXINORM (OXYCODONE HYDROCHLORIDE) [Suspect]
     Active Substance: OXYCODONE HYDROCHLORIDE
     Indication: CANCER PAIN
     Dosage: 2.5 MG, BID
     Route: 048
     Dates: start: 20160623, end: 20160623
  9. OXINORM (OXYCODONE HYDROCHLORIDE) [Suspect]
     Active Substance: OXYCODONE HYDROCHLORIDE
     Dosage: 2.5 MG, TID
     Route: 048
     Dates: start: 20160622, end: 20160622
  10. OMEPRAZOLE. [Concomitant]
     Active Substance: OMEPRAZOLE
  11. ACETAMINOPHEN. [Suspect]
     Active Substance: ACETAMINOPHEN
     Indication: CANCER PAIN
     Dosage: UNK
     Route: 048
  12. MAGMITT [Concomitant]
     Active Substance: MAGNESIUM OXIDE

REACTIONS (2)
  - Liver disorder [Recovered/Resolved]
  - Delirium [Recovered/Resolved]

NARRATIVE: CASE EVENT DATE: 201606
